FAERS Safety Report 9157748 (Version 1)
Quarter: 2013Q1

REPORT INFORMATION
  Report Type: Spontaneous
  Country: DK (occurrence: None)
  Receive Date: 20130213
  Receipt Date: 20130213
  Transmission Date: 20140127
  Serious: Yes (Hospitalization)
  Sender: FDA-Public Use
  Company Number: 2013MA000951

PATIENT
  Age: 67 Year
  Sex: Female

DRUGS (7)
  1. METFORMIN HYDROCHLORIDE [Suspect]
  2. LEVEMIR [Suspect]
  3. NOVORAPID [Suspect]
     Dates: start: 200503
  4. LEVEMIR [Suspect]
     Dates: start: 200510
  5. SIMVASTATIN [Concomitant]
  6. INDAPAMIDE [Concomitant]
  7. LETROZOLE [Concomitant]

REACTIONS (8)
  - Ketoacidosis [None]
  - Device difficult to use [None]
  - Unevaluable event [None]
  - Stress [None]
  - Balance disorder [None]
  - Malaise [None]
  - Loss of consciousness [None]
  - Incorrect dose administered [None]
